FAERS Safety Report 13880978 (Version 1)
Quarter: 2017Q3

REPORT INFORMATION
  Report Type: Report from Study
  Country: US (occurrence: US)
  Receive Date: 20170818
  Receipt Date: 20170818
  Transmission Date: 20171127
  Serious: Yes (Other)
  Sender: FDA-Public Use
  Company Number: US-ROCHE-1974932

PATIENT
  Age: 47 Year
  Sex: Male

DRUGS (1)
  1. RITUXAN [Suspect]
     Active Substance: RITUXIMAB
     Indication: MULTIPLE SCLEROSIS
     Dosage: DAY 1 AND DAY 15
     Route: 042

REACTIONS (3)
  - Intentional product use issue [Unknown]
  - Cerebrovascular accident [Unknown]
  - Off label use [Unknown]

NARRATIVE: CASE EVENT DATE: 201702
